FAERS Safety Report 22618040 (Version 2)
Quarter: 2024Q3

REPORT INFORMATION
  Report Type: Spontaneous
  Country: IT (occurrence: IT)
  Receive Date: 20230620
  Receipt Date: 20240711
  Transmission Date: 20241017
  Serious: No
  Sender: PIERRE FABRE MEDICAMENT
  Company Number: IT-PFM-2022-07256

PATIENT
  Age: 2 Year
  Sex: Female
  Weight: 12 kg

DRUGS (1)
  1. PROPRANOLOL HYDROCHLORIDE [Suspect]
     Active Substance: PROPRANOLOL HYDROCHLORIDE
     Indication: Product used for unknown indication
     Dosage: 24 MG IN ONE SINGLE INTAKE (CORRESPONDING TO 2 MG/KG),
     Route: 048
     Dates: start: 20220929, end: 20220929

REACTIONS (2)
  - Medication error [Unknown]
  - Incorrect dose administered [Unknown]
